FAERS Safety Report 8779394 (Version 2)
Quarter: 2012Q4

REPORT INFORMATION
  Report Type: 
  Country: JP (occurrence: JP)
  Receive Date: 20120912
  Receipt Date: 20120917
  Transmission Date: 20130627
  Serious: Yes (Death, Congenital Anomaly)
  Sender: FDA-Public Use
  Company Number: JP-PFIZER INC-2012218182

PATIENT
  Sex: Female
  Weight: 1.3 kg

DRUGS (3)
  1. AMPICILLIN SODIUM W/SULBACTAM SODIUM [Suspect]
     Dosage: 6 g, 1x/day
     Route: 064
  2. FLUTICASONE PROPIONATE [Suspect]
     Indication: ASTHMA
     Route: 064
  3. RITODRINE HYDROCHLORIDE [Suspect]
     Dosage: UNK ug, UNK
     Route: 064

REACTIONS (2)
  - Maternal exposure timing unspecified [Fatal]
  - Otocephaly [Fatal]
